FAERS Safety Report 5577892-6 (Version None)
Quarter: 2007Q4

REPORT INFORMATION
  Report Type: 
  Country: None (occurrence: None)
  Receive Date: 20071130
  Receipt Date: 20070710
  Transmission Date: 20080405
  Serious: No
  Sender: FDA-Public Use
  Company Number: US200707000616

PATIENT
  Age: 80 Year
  Sex: Male

DRUGS (5)
  1. BYETTA [Suspect]
     Indication: TYPE 2 DIABETES MELLITUS
     Dosage: 5UG, 2/D, 5 UG, DAILY (1/D) SUBCUTANEOUS
     Route: 058
     Dates: start: 20070621, end: 20070601
  2. BYETTA [Suspect]
     Indication: TYPE 2 DIABETES MELLITUS
     Dosage: 5UG, 2/D, 5 UG, DAILY (1/D) SUBCUTANEOUS
     Route: 058
     Dates: start: 20070622
  3. GLYBURIDE [Concomitant]
  4. METFORMIN HCL [Concomitant]
  5. AVANDIA [Concomitant]

REACTIONS (6)
  - ABDOMINAL DISTENSION [None]
  - BLOOD GLUCOSE INCREASED [None]
  - DYSPEPSIA [None]
  - FLATULENCE [None]
  - GASTROENTERITIS VIRAL [None]
  - STOMACH DISCOMFORT [None]
